FAERS Safety Report 5348204-8 (Version None)
Quarter: 2007Q2

REPORT INFORMATION
  Report Type: 
  Country: None (occurrence: None)
  Receive Date: 20070606
  Receipt Date: 20070529
  Transmission Date: 20071010
  Serious: Yes (Other)
  Sender: FDA-Public Use
  Company Number: HQWYE710603AUG04

PATIENT
  Sex: Female
  Weight: 75.36 kg

DRUGS (1)
  1. PREMPRO [Suspect]

REACTIONS (3)
  - BREAST CANCER METASTATIC [None]
  - METASTASES TO LIVER [None]
  - METASTASES TO LYMPH NODES [None]
